FAERS Safety Report 24995548 (Version 2)
Quarter: 2025Q2

REPORT INFORMATION
  Report Type: Report from Study
  Country: CN (occurrence: CN)
  Receive Date: 20250221
  Receipt Date: 20250407
  Transmission Date: 20250717
  Serious: Yes (Hospitalization, Other)
  Sender: PFIZER
  Company Number: CN-TAKEDA-2023TUS121963

PATIENT
  Age: 37 Year
  Sex: Female
  Weight: 51 kg

DRUGS (12)
  1. BRENTUXIMAB VEDOTIN [Suspect]
     Active Substance: BRENTUXIMAB VEDOTIN
     Indication: Hodgkin^s disease
     Route: 041
     Dates: start: 20230921
  2. DACARBAZINE [Suspect]
     Active Substance: DACARBAZINE
     Dosage: 573 MG, 1X/DAY
     Route: 042
     Dates: start: 20230921
  3. DOXORUBICIN HYDROCHLORIDE [Suspect]
     Active Substance: DOXORUBICIN HYDROCHLORIDE
     Dosage: 20 MG, 1X/DAY
     Route: 042
     Dates: start: 20230921
  4. VINDESINE [Suspect]
     Active Substance: VINDESINE
     Dosage: 4 MG, 1X/DAY
     Route: 042
     Dates: start: 20230921
  5. METHOTREXATE SODIUM [Concomitant]
     Active Substance: METHOTREXATE SODIUM
     Indication: Rheumatoid arthritis
     Dosage: UNK UNK, 1/WEEK
     Route: 048
     Dates: start: 2023
  6. PALONOSETRON HYDROCHLORIDE [Concomitant]
     Active Substance: PALONOSETRON HYDROCHLORIDE
     Indication: Antiemetic supportive care
     Dosage: 0.5 MILLIGRAM, QD
     Route: 048
     Dates: start: 20230921, end: 20230921
  7. SULFAMETHOXAZOLE [Concomitant]
     Active Substance: SULFAMETHOXAZOLE
     Indication: Pneumocystis jirovecii pneumonia
     Dosage: UNK UNK, 3X/DAY
     Route: 048
     Dates: start: 20230921, end: 20230921
  8. ACYCLOVIR [Concomitant]
     Active Substance: ACYCLOVIR
     Indication: Antiviral prophylaxis
     Dosage: 0.4 GRAM, BID
     Route: 048
     Dates: start: 20230921, end: 20230921
  9. DEXAMETHASONE [Concomitant]
     Active Substance: DEXAMETHASONE
     Indication: Prophylaxis
     Dosage: 5 MILLIGRAM, QD
     Route: 058
     Dates: start: 20231009, end: 20231009
  10. CEFACLOR [Concomitant]
     Active Substance: CEFACLOR
     Dosage: 750 MILLIGRAM, BID
     Route: 048
  11. ZOLPIDEM TARTRATE [Concomitant]
     Active Substance: ZOLPIDEM TARTRATE
     Indication: Insomnia
     Dosage: 10 MILLIGRAM, QD
     Route: 048
     Dates: start: 202310
  12. COMPOUND CHLORHEXIDINE GARGLE [Concomitant]
     Indication: Oral infection
     Route: 065
     Dates: start: 202310

REACTIONS (11)
  - Drug eruption [Recovered/Resolved]
  - Liver injury [Unknown]
  - Myelosuppression [Unknown]
  - Neurotoxicity [Unknown]
  - Neutrophil count decreased [Unknown]
  - White blood cell count decreased [Unknown]
  - Aspartate aminotransferase increased [Unknown]
  - Alanine aminotransferase increased [Unknown]
  - Dermatitis [Unknown]
  - Insomnia [Unknown]
  - Off label use [Recovered/Resolved]

NARRATIVE: CASE EVENT DATE: 20230921
